FAERS Safety Report 13136358 (Version 1)
Quarter: 2017Q1

REPORT INFORMATION
  Report Type: Report from Study
  Country: None (occurrence: US)
  Receive Date: 20170121
  Receipt Date: 20170121
  Transmission Date: 20170428
  Serious: Yes (Death)
  Sender: FDA-Public Use
  Company Number: US-ABBVIE-17P-163-1844808-00

PATIENT
  Age: 67 Year
  Sex: Male

DRUGS (1)
  1. SYNTHROID [Suspect]
     Active Substance: LEVOTHYROXINE SODIUM
     Indication: PRODUCT USED FOR UNKNOWN INDICATION
     Route: 048
     Dates: start: 201608

REACTIONS (1)
  - Death [Fatal]

NARRATIVE: CASE EVENT DATE: 20161226
